FAERS Safety Report 24106394 (Version 1)
Quarter: 2024Q3

REPORT INFORMATION
  Report Type: Spontaneous
  Country: US (occurrence: US)
  Receive Date: 20240717
  Receipt Date: 20240717
  Transmission Date: 20241017
  Serious: No
  Sender: Phathom Pharmaceuticals
  Company Number: US-PHATHOM PHARMACEUTICALS INC.-2024PHT00512

PATIENT
  Age: 39 Year
  Sex: Female

DRUGS (20)
  1. VOQUEZNA [Suspect]
     Active Substance: VONOPRAZAN FUMARATE
     Indication: Gastrooesophageal reflux disease
     Dosage: 20 MG, 1X/DAY
     Route: 048
     Dates: start: 20240506
  2. RIZATRIPTAN [Concomitant]
     Active Substance: RIZATRIPTAN
  3. PROMETHAZINE [Concomitant]
     Active Substance: PROMETHAZINE HYDROCHLORIDE
  4. PANTOPRAZOLE [Concomitant]
     Active Substance: PANTOPRAZOLE
  5. DICYCLOMINE [Concomitant]
     Active Substance: DICYCLOMINE HYDROCHLORIDE
  6. METFORMIN [Concomitant]
     Active Substance: METFORMIN HYDROCHLORIDE
  7. FAMOTIDINE [Concomitant]
     Active Substance: FAMOTIDINE
  8. ALOSETRON [Concomitant]
     Active Substance: ALOSETRON
  9. GLYBURIDE [Concomitant]
     Active Substance: GLYBURIDE
  10. SUCRALFATE [Concomitant]
     Active Substance: SUCRALFATE
  11. FENOFIBRATE [Concomitant]
     Active Substance: FENOFIBRATE
  12. LYRICA [Concomitant]
     Active Substance: PREGABALIN
  13. BACLOFEN [Concomitant]
     Active Substance: BACLOFEN
  14. HYDROXYZINE HYDROCHLORIDE [Concomitant]
     Active Substance: HYDROXYZINE HYDROCHLORIDE
  15. ALLOPURINOL [Concomitant]
     Active Substance: ALLOPURINOL
  16. COLESTIPOL [Concomitant]
     Active Substance: COLESTIPOL
  17. FUROSEMIDE [Concomitant]
     Active Substance: FUROSEMIDE
  18. ESCITALOPRAM OXALATE [Concomitant]
     Active Substance: ESCITALOPRAM OXALATE
  19. LOSARTAN [Concomitant]
     Active Substance: LOSARTAN
  20. PROGESTERONE [Concomitant]
     Active Substance: PROGESTERONE

REACTIONS (1)
  - Drug ineffective [Not Recovered/Not Resolved]

NARRATIVE: CASE EVENT DATE: 20240506
